FAERS Safety Report 5312509-7 (Version None)
Quarter: 2007Q2

REPORT INFORMATION
  Report Type: 
  Country: None (occurrence: None)
  Receive Date: 20070430
  Receipt Date: 20070420
  Transmission Date: 20071010
  Serious: Yes (Death, Hospitalization, Disabling)
  Sender: FDA-Public Use
  Company Number: US-MERCK-0610USA08479

PATIENT
  Age: 69 Year
  Sex: Female

DRUGS (6)
  1. FOSAMAX [Suspect]
     Indication: OSTEOPOROSIS
     Route: 048
     Dates: start: 19970801
  2. FOSAMAX [Suspect]
     Route: 048
     Dates: end: 20020101
  3. FOSAMAX [Suspect]
     Route: 048
     Dates: start: 19980601, end: 19980601
  4. DOXEPIN HYDROCHLORIDE [Concomitant]
     Indication: BACK PAIN
     Route: 065
  5. PREMARIN [Concomitant]
     Route: 065
  6. CALCIUM (UNSPECIFIED) [Concomitant]
     Route: 065

REACTIONS (21)
  - BRAIN STEM ISCHAEMIA [None]
  - CEREBROVASCULAR ACCIDENT [None]
  - CHEST PAIN [None]
  - CLOSTRIDIUM DIFFICILE COLITIS [None]
  - DISSEMINATED INTRAVASCULAR COAGULATION [None]
  - DIZZINESS [None]
  - EROSIVE OESOPHAGITIS [None]
  - FALL [None]
  - GASTROINTESTINAL HAEMORRHAGE [None]
  - HAEMATOMA [None]
  - ISCHAEMIC ULCER [None]
  - MENTAL STATUS CHANGES [None]
  - MUSCLE SPASMS [None]
  - OSTEOMYELITIS [None]
  - OSTEOMYELITIS CHRONIC [None]
  - OSTEONECROSIS [None]
  - PAIN IN EXTREMITY [None]
  - PARAESTHESIA [None]
  - PROCTITIS ULCERATIVE [None]
  - SUBDURAL HAEMATOMA [None]
  - URINARY TRACT INFECTION [None]
